FAERS Safety Report 25149799 (Version 1)
Quarter: 2025Q2

REPORT INFORMATION
  Report Type: Spontaneous
  Country: FR (occurrence: FR)
  Receive Date: 20250402
  Receipt Date: 20250402
  Transmission Date: 20250717
  Serious: Yes (Life-Threatening)
  Sender: MYLAN
  Company Number: FR-MYLANLABS-2025M1025199

PATIENT
  Age: 75 Year
  Sex: Male
  Weight: 63 kg

DRUGS (6)
  1. VANCOMYCIN [Suspect]
     Active Substance: VANCOMYCIN
     Indication: Endocarditis
  2. VANCOMYCIN [Suspect]
     Active Substance: VANCOMYCIN
     Dosage: 2.5 GRAM, QD
     Dates: start: 20250306
  3. VANCOMYCIN [Suspect]
     Active Substance: VANCOMYCIN
  4. VANCOMYCIN [Suspect]
     Active Substance: VANCOMYCIN
  5. RIVAROXABAN [Concomitant]
     Active Substance: RIVAROXABAN
     Indication: Arrhythmia
  6. RIVAROXABAN [Concomitant]
     Active Substance: RIVAROXABAN
     Indication: Atrial fibrillation

REACTIONS (3)
  - Suspected product contamination [Not Recovered/Not Resolved]
  - Product preparation issue [Not Recovered/Not Resolved]
  - Poor quality product administered [Unknown]

NARRATIVE: CASE EVENT DATE: 20250317
